FAERS Safety Report 8164629-X (Version None)
Quarter: 2012Q1

REPORT INFORMATION
  Report Type: 
  Country: None (occurrence: None)
  Receive Date: 20120227
  Receipt Date: 20120214
  Transmission Date: 20120608
  Serious: Yes (Hospitalization)
  Sender: FDA-Public Use
  Company Number: US-BIOGENIDEC-2012BI004598

PATIENT
  Age: 45 Year
  Sex: Female

DRUGS (6)
  1. NAMENDA [Concomitant]
  2. PROVIGIL [Concomitant]
  3. ZANAFLEX [Concomitant]
  4. PROZAC [Concomitant]
  5. TYSABRI [Suspect]
     Indication: RELAPSING-REMITTING MULTIPLE SCLEROSIS
     Route: 042
     Dates: start: 20060814, end: 20120118
  6. PROTONIX [Concomitant]

REACTIONS (1)
  - PROGRESSIVE MULTIFOCAL LEUKOENCEPHALOPATHY [None]
